FAERS Safety Report 7400361-5 (Version None)
Quarter: 2011Q2

REPORT INFORMATION
  Report Type: 
  Country: None (occurrence: None)
  Receive Date: 20110407
  Receipt Date: 20110404
  Transmission Date: 20111010
  Serious: Yes (Other)
  Sender: FDA-Public Use
  Company Number: US-MERCK-1104USA00260

PATIENT
  Sex: Female

DRUGS (2)
  1. FOSAMAX [Suspect]
     Route: 048
  2. FORTEO [Suspect]
     Route: 065

REACTIONS (3)
  - THROAT CANCER [None]
  - DRUG INEFFECTIVE [None]
  - CHOKING [None]
